FAERS Safety Report 10557432 (Version 7)
Quarter: 2015Q2

REPORT INFORMATION
  Report Type: Spontaneous
  Country: US (occurrence: US)
  Receive Date: 20141031
  Receipt Date: 20150508
  Transmission Date: 20150821
  Serious: Yes (Hospitalization, Other)
  Sender: FDA-Public Use
  Company Number: US-BAYER-2014-159376

PATIENT
  Age: 36 Year
  Sex: Female
  Weight: 68.27 kg

DRUGS (2)
  1. MIRENA [Suspect]
     Active Substance: LEVONORGESTREL
     Indication: CONTRACEPTION
     Dosage: 20 MCG/24HR, CONT
     Route: 015
     Dates: start: 20100705, end: 20121018
  2. MIRENA [Suspect]
     Active Substance: LEVONORGESTREL
     Indication: CONTRACEPTION
     Dosage: 20 MCG/24HR, CONT
     Route: 015
     Dates: start: 20060802, end: 200807

REACTIONS (16)
  - Marital problem [None]
  - Injury [None]
  - Emotional distress [None]
  - Libido decreased [None]
  - Discomfort [None]
  - Malaise [None]
  - Anxiety [None]
  - Umbilical hernia [None]
  - Headache [None]
  - Depression [None]
  - Pain [None]
  - General physical health deterioration [None]
  - Abdominal pain upper [None]
  - Uterine perforation [None]
  - Abortion spontaneous [None]
  - Device issue [None]

NARRATIVE: CASE EVENT DATE: 20091113
